FAERS Safety Report 4394411-0 (Version None)
Quarter: 2004Q3

REPORT INFORMATION
  Report Type: 
  Country: None (occurrence: None)
  Receive Date: 20040712
  Receipt Date: 20040622
  Transmission Date: 20050211
  Serious: Yes (Disabling)
  Sender: FDA-Public Use
  Company Number: 200412147JP

PATIENT
  Age: 3 Month
  Sex: Female
  Weight: 2.8 kg

DRUGS (5)
  1. LASIX [Suspect]
     Indication: DIURETIC THERAPY
     Route: 042
     Dates: start: 20040225, end: 20040621
  2. INOVAN [Concomitant]
     Indication: CARDIOVASCULAR DISORDER
     Route: 041
     Dates: start: 20040225, end: 20040320
  3. PALUX [Concomitant]
     Indication: PATENT DUCTUS ARTERIOSUS
     Dosage: DOSE: 8.4UG/KG/MIN
     Route: 041
     Dates: start: 20040225, end: 20040302
  4. DORMICUM [Concomitant]
     Indication: SEDATION
     Dosage: DOSE: 0.28MG/KG/HOUR
     Route: 041
     Dates: start: 20040225, end: 20040309
  5. MUSCULAX [Concomitant]
     Indication: SEDATION
     Dosage: DOSE: 0.06MG/KG/HOUR
     Route: 041
     Dates: start: 20040225, end: 20040309

REACTIONS (3)
  - CALCULUS BLADDER [None]
  - HAEMATURIA [None]
  - NEPHROLITHIASIS [None]
